FAERS Safety Report 8024385-2 (Version None)
Quarter: 2012Q1

REPORT INFORMATION
  Report Type: 
  Country: None (occurrence: None)
  Receive Date: 20120105
  Receipt Date: 20120105
  Transmission Date: 20120608
  Serious: No
  Sender: FDA-Public Use
  Company Number: None

PATIENT
  Age: 44 Year
  Sex: Male
  Weight: 82.553 kg

DRUGS (1)
  1. LEVETIRACETAM [Suspect]
     Indication: EPILEPSY
     Dosage: 1000MG
     Route: 048

REACTIONS (4)
  - PRODUCT SOLUBILITY ABNORMAL [None]
  - MEDICATION RESIDUE [None]
  - CONVULSION [None]
  - PRODUCT SUBSTITUTION ISSUE [None]
